FAERS Safety Report 10949385 (Version 2)
Quarter: 2015Q2

REPORT INFORMATION
  Report Type: Spontaneous
  Country: PT (occurrence: PT)
  Receive Date: 20150324
  Receipt Date: 20150504
  Transmission Date: 20150821
  Serious: Yes (Other)
  Sender: FDA-Public Use
  Company Number: PT-PFIZER INC-2015096829

PATIENT
  Age: 41 Year
  Sex: Female
  Weight: 65 kg

DRUGS (1)
  1. BOSULIF [Suspect]
     Active Substance: BOSUTINIB MONOHYDRATE
     Indication: CHRONIC MYELOID LEUKAEMIA
     Dosage: 500 MG, 1X/DAY
     Route: 048
     Dates: start: 20150307, end: 20150314

REACTIONS (4)
  - Toxic skin eruption [Recovered/Resolved with Sequelae]
  - Generalised oedema [Recovered/Resolved with Sequelae]
  - Generalised erythema [Recovered/Resolved with Sequelae]
  - Rash generalised [Recovered/Resolved with Sequelae]

NARRATIVE: CASE EVENT DATE: 20150314
